FAERS Safety Report 6607723-4 (Version None)
Quarter: 2010Q1

REPORT INFORMATION
  Report Type: 
  Country: None (occurrence: None)
  Receive Date: 20100301
  Receipt Date: 20100223
  Transmission Date: 20100710
  Serious: Yes (Hospitalization)
  Sender: FDA-Public Use
  Company Number: US-JNJFOC-20100210208

PATIENT
  Sex: Male
  Weight: 49.9 kg

DRUGS (2)
  1. REMICADE [Suspect]
     Indication: COLITIS ULCERATIVE
     Route: 042
  2. HUMIRA [Concomitant]
     Indication: COLITIS ULCERATIVE

REACTIONS (4)
  - DIARRHOEA HAEMORRHAGIC [None]
  - DRUG EFFECT DECREASED [None]
  - VOMITING [None]
  - WEIGHT DECREASED [None]
